FAERS Safety Report 10830331 (Version 1)
Quarter: 2015Q1

REPORT INFORMATION
  Report Type: Spontaneous
  Country: FR (occurrence: FR)
  Receive Date: 20150219
  Receipt Date: 20150219
  Transmission Date: 20150721
  Serious: Yes (Hospitalization)
  Sender: FDA-Public Use
  Company Number: FR-ASTRAZENECA-2015SE14910

PATIENT
  Age: 22815 Day
  Sex: Female

DRUGS (15)
  1. NEORAL [Concomitant]
     Active Substance: CYCLOSPORINE
     Dates: start: 201404
  2. CORTANCYL [Concomitant]
     Active Substance: PREDNISONE
     Dates: start: 201404
  3. TIENAM [Concomitant]
     Active Substance: CILASTATIN SODIUM\IMIPENEM
     Route: 048
     Dates: start: 20141002, end: 20141007
  4. BRICANYL [Concomitant]
     Active Substance: TERBUTALINE SULFATE
     Dates: start: 201410
  5. ATROVENT [Concomitant]
     Active Substance: IPRATROPIUM BROMIDE
     Dates: start: 201410
  6. INEXIUM [Suspect]
     Active Substance: ESOMEPRAZOLE
     Indication: ABDOMINAL PAIN UPPER
     Route: 048
     Dates: start: 20141004, end: 20141017
  7. AMIKACINE [Concomitant]
     Active Substance: AMIKACIN
     Route: 048
     Dates: start: 20141002, end: 20141007
  8. ACUPAN [Concomitant]
     Active Substance: NEFOPAM HYDROCHLORIDE
     Dates: start: 20141006, end: 20141017
  9. CIFLOX [Concomitant]
     Active Substance: CIPROFLOXACIN
     Dates: start: 20141007, end: 20141013
  10. PEVARYL [Concomitant]
     Active Substance: ECONAZOLE NITRATE
     Dates: start: 201410
  11. INEXIUM [Suspect]
     Active Substance: ESOMEPRAZOLE
     Indication: ABDOMINAL PAIN UPPER
     Route: 048
     Dates: start: 20141126, end: 2014
  12. BACTRIM [Concomitant]
     Active Substance: SULFAMETHOXAZOLE\TRIMETHOPRIM
     Dates: start: 20141007, end: 20141013
  13. VANCOMYCINE SANDOZ [Concomitant]
     Active Substance: VANCOMYCIN
     Route: 048
     Dates: start: 20141002, end: 20141007
  14. CALCIUM GLUCONATE. [Concomitant]
     Active Substance: CALCIUM GLUCONATE
     Dates: start: 201410
  15. SPASFON [Concomitant]
     Active Substance: PHLOROGLUCINOL
     Dates: start: 201410

REACTIONS (4)
  - Hepatocellular injury [Recovering/Resolving]
  - Blood alkaline phosphatase increased [Recovering/Resolving]
  - Cholestasis [Recovering/Resolving]
  - Transaminases increased [Recovering/Resolving]

NARRATIVE: CASE EVENT DATE: 20141008
